FAERS Safety Report 9231560 (Version 3)
Quarter: 2013Q2

REPORT INFORMATION
  Report Type: Spontaneous
  Country: GB (occurrence: GB)
  Receive Date: 20130415
  Receipt Date: 20130509
  Transmission Date: 20140414
  Serious: Yes (Other)
  Sender: FDA-Public Use
  Company Number: GB-TEVA-397611ISR

PATIENT
  Age: 39 Year
  Sex: Female

DRUGS (1)
  1. RODOMEL XL [Suspect]
     Indication: DEPRESSION
     Route: 065
     Dates: end: 201303

REACTIONS (8)
  - Suicidal ideation [Recovered/Resolved]
  - Vomiting [Unknown]
  - Malaise [Recovered/Resolved]
  - Dizziness [Recovered/Resolved]
  - Insomnia [Unknown]
  - Dysstasia [Unknown]
  - Product substitution issue [Unknown]
  - Anxiety [Recovered/Resolved]
